FAERS Safety Report 20620998 (Version 1)
Quarter: 2022Q1

REPORT INFORMATION
  Report Type: Spontaneous
  Country: US (occurrence: US)
  Receive Date: 20220322
  Receipt Date: 20220322
  Transmission Date: 20220423
  Serious: No
  Sender: FDA-Public Use
  Company Number: US-drreddys-SPO/USA/22/0147855

PATIENT
  Age: 15 Year

DRUGS (1)
  1. ZENATANE [Suspect]
     Active Substance: ISOTRETINOIN
     Indication: Product used for unknown indication
     Dosage: RMA ISSUE DATE: 17 NOVEMBER 2021 07:45:11 PM, 31 DECEMBER 2021 10:31:15 AM, 19 JUNARY 2022 05:12:46

REACTIONS (1)
  - Ill-defined disorder [Unknown]
